FAERS Safety Report 8359425-4 (Version None)
Quarter: 2012Q2

REPORT INFORMATION
  Report Type: 
  Country: None (occurrence: None)
  Receive Date: 20120514
  Receipt Date: 20120514
  Transmission Date: 20120825
  Serious: Yes (Hospitalization)
  Sender: FDA-Public Use
  Company Number: None

PATIENT
  Age: 54 Year
  Sex: Female
  Weight: 74.3 kg

DRUGS (2)
  1. CLONAZEPAM [Suspect]
     Indication: MANIA
     Dosage: 1 MG TID PO
     Route: 048
     Dates: start: 20001103, end: 20120416
  2. QUETIAPINE [Suspect]
     Indication: BIPOLAR I DISORDER
     Dosage: 100 MG BID PO
     Route: 048
     Dates: start: 20010522, end: 20120416

REACTIONS (5)
  - DRUG SCREEN POSITIVE [None]
  - SUICIDAL IDEATION [None]
  - MULTIPLE DRUG OVERDOSE [None]
  - DRUG ABUSE [None]
  - SEDATION [None]
